FAERS Safety Report 8147107-3 (Version None)
Quarter: 2012Q1

REPORT INFORMATION
  Report Type: 
  Country: None (occurrence: None)
  Receive Date: 20120218
  Receipt Date: 20110119
  Transmission Date: 20120608
  Serious: No
  Sender: FDA-Public Use
  Company Number: US-ALLERGAN-1100499US

PATIENT
  Age: 65 Year
  Sex: Female
  Weight: 60.771 kg

DRUGS (5)
  1. ZIAC [Concomitant]
     Indication: HYPERTENSION
     Dosage: 5 MG, UNK
     Route: 048
  2. PREMPRO [Concomitant]
     Indication: HORMONE REPLACEMENT THERAPY
     Dosage: UNK
     Route: 048
  3. DERMAL FILLER UNSPECIFIED [Concomitant]
     Indication: SKIN WRINKLING
     Dosage: UNK
     Dates: start: 20101222, end: 20101222
  4. APPETITE SUPPRESSANT UNSPECIFIED [Concomitant]
     Dosage: UNK
  5. BOTOX COSMETIC [Suspect]
     Indication: SKIN WRINKLING
     Dosage: 22 UNITS, SINGLE
     Route: 030
     Dates: start: 20101217, end: 20101217

REACTIONS (1)
  - MUSCULAR WEAKNESS [None]
